FAERS Safety Report 6476652-1 (Version None)
Quarter: 2009Q4

REPORT INFORMATION
  Report Type: 
  Country: None (occurrence: None)
  Receive Date: 20091203
  Receipt Date: 20091203
  Transmission Date: 20100525
  Serious: Yes (Hospitalization)
  Sender: FDA-Public Use
  Company Number: None

PATIENT
  Sex: Male
  Weight: 38.3 kg

DRUGS (25)
  1. AVASTIN [Suspect]
     Indication: GLIOMA
     Dosage: 10 MG/KG/ DOSE IV
     Route: 042
     Dates: start: 20090618
  2. AVASTIN [Suspect]
     Indication: GLIOMA
     Dosage: 10 MG/KG/ DOSE IV
     Route: 042
     Dates: start: 20090701
  3. AVASTIN [Suspect]
     Indication: GLIOMA
     Dosage: 10 MG/KG/ DOSE IV
     Route: 042
     Dates: start: 20090716
  4. AVASTIN [Suspect]
     Indication: GLIOMA
     Dosage: 10 MG/KG/ DOSE IV
     Route: 042
     Dates: start: 20090813
  5. AVASTIN [Suspect]
     Indication: GLIOMA
     Dosage: 10 MG/KG/ DOSE IV
     Route: 042
     Dates: start: 20090827
  6. AVASTIN [Suspect]
     Indication: GLIOMA
     Dosage: 10 MG/KG/ DOSE IV
     Route: 042
     Dates: start: 20090910
  7. AVASTIN [Suspect]
     Indication: GLIOMA
     Dosage: 10 MG/KG/ DOSE IV
     Route: 042
     Dates: start: 20090924
  8. AVASTIN [Suspect]
     Indication: GLIOMA
     Dosage: 10 MG/KG/ DOSE IV
     Route: 042
     Dates: start: 20091008
  9. AVASTIN [Suspect]
     Indication: GLIOMA
     Dosage: 10 MG/KG/ DOSE IV
     Route: 042
     Dates: start: 20091022
  10. AVASTIN [Suspect]
     Indication: GLIOMA
     Dosage: 10 MG/KG/ DOSE IV
     Route: 042
     Dates: start: 20091105
  11. AVASTIN [Suspect]
     Indication: GLIOMA
     Dosage: 10 MG/KG/ DOSE IV
     Route: 042
     Dates: start: 20091119
  12. IRINOTECAN HCL [Suspect]
     Indication: GLIOMA
     Dosage: 125 MG/KG/DOSE IV
     Route: 042
     Dates: start: 20090813
  13. IRINOTECAN HCL [Suspect]
     Indication: GLIOMA
     Dosage: 125 MG/KG/DOSE IV
     Route: 042
     Dates: start: 20090827
  14. IRINOTECAN HCL [Suspect]
     Indication: GLIOMA
     Dosage: 125 MG/KG/DOSE IV
     Route: 042
     Dates: start: 20090910
  15. IRINOTECAN HCL [Suspect]
     Indication: GLIOMA
     Dosage: 125 MG/KG/DOSE IV
     Route: 042
     Dates: start: 20090924
  16. IRINOTECAN HCL [Suspect]
     Indication: GLIOMA
     Dosage: 125 MG/KG/DOSE IV
     Route: 042
     Dates: start: 20091008
  17. IRINOTECAN HCL [Suspect]
     Indication: GLIOMA
     Dosage: 125 MG/KG/DOSE IV
     Route: 042
     Dates: start: 20091022
  18. IRINOTECAN HCL [Suspect]
     Indication: GLIOMA
     Dosage: 125 MG/KG/DOSE IV
     Route: 042
     Dates: start: 20091105
  19. IRINOTECAN HCL [Suspect]
     Indication: GLIOMA
     Dosage: 125 MG/KG/DOSE IV
     Route: 042
     Dates: start: 20091119
  20. METHYLPHENIDATE HCL [Concomitant]
  21. ZYRTEC [Concomitant]
  22. KYTRIL [Concomitant]
  23. LIDOCAINE [Concomitant]
  24. IMODIUM [Concomitant]
  25. PENTOMIDINE [Concomitant]

REACTIONS (7)
  - COUGH [None]
  - HEADACHE [None]
  - MALAISE [None]
  - MYALGIA [None]
  - OROPHARYNGEAL PAIN [None]
  - PYREXIA [None]
  - VOMITING [None]
